FAERS Safety Report 17324992 (Version 1)
Quarter: 2020Q1

REPORT INFORMATION
  Report Type: Spontaneous
  Country: US (occurrence: US)
  Receive Date: 20200110
  Receipt Date: 20200110
  Transmission Date: 20200409
  Serious: Yes (Hospitalization)
  Sender: FDA-Public Use
  Company Number: None

PATIENT
  Sex: Female
  Weight: 81.2 kg

DRUGS (2)
  1. CYCLOPHOSPHAMIDE (26271) [Suspect]
     Active Substance: CYCLOPHOSPHAMIDE
  2. DOXOCRUBICIN HYDROCHLORIDE [Concomitant]

REACTIONS (6)
  - Dyspnoea exertional [None]
  - Angiopathy [None]
  - Chest pain [None]
  - Chest discomfort [None]
  - Pulmonary embolism [None]
  - Embolism [None]

NARRATIVE: CASE EVENT DATE: 20060217
